FAERS Safety Report 10991081 (Version 1)
Quarter: 2015Q2

REPORT INFORMATION
  Report Type: Spontaneous
  Country: US (occurrence: US)
  Receive Date: 20150406
  Receipt Date: 20150406
  Transmission Date: 20150821
  Serious: Yes (Hospitalization, Other)
  Sender: FDA-Public Use
  Company Number: US-SA-2015SA037855

PATIENT
  Sex: Female
  Weight: 73 kg

DRUGS (19)
  1. ZOLOFT [Suspect]
     Active Substance: SERTRALINE HYDROCHLORIDE
     Indication: DEPRESSION
     Dosage: FREQUENCY AND DAILY DOSE: 50 MG DAILY IN 1 WEEK
     Route: 048
  2. AUBAGIO [Suspect]
     Active Substance: TERIFLUNOMIDE
     Route: 065
     Dates: start: 2014, end: 201502
  3. AMPYRA [Suspect]
     Active Substance: DALFAMPRIDINE
     Indication: GAIT DISTURBANCE
     Route: 048
     Dates: start: 201006, end: 201008
  4. ZOLOFT [Suspect]
     Active Substance: SERTRALINE HYDROCHLORIDE
     Indication: AFFECTIVE DISORDER
     Route: 048
     Dates: start: 201110
  5. MARIJUANA [Concomitant]
     Active Substance: CANNABIS SATIVA SUBSP. INDICA TOP
  6. AMPYRA [Suspect]
     Active Substance: DALFAMPRIDINE
     Indication: GAIT DISTURBANCE
     Route: 048
     Dates: start: 201009, end: 201202
  7. ZOLOFT [Suspect]
     Active Substance: SERTRALINE HYDROCHLORIDE
     Indication: DEPRESSION
     Route: 048
     Dates: start: 201110
  8. REBIF [Concomitant]
     Active Substance: INTERFERON BETA-1A
     Route: 058
  9. PROVIGIL [Concomitant]
     Active Substance: MODAFINIL
  10. AMPYRA [Suspect]
     Active Substance: DALFAMPRIDINE
     Indication: GAIT DISTURBANCE
     Route: 048
     Dates: start: 201110
  11. ZOLOFT [Suspect]
     Active Substance: SERTRALINE HYDROCHLORIDE
     Indication: AFFECTIVE DISORDER
     Dosage: FREQUENCY AND DAILY DOSE: 50 MG DAILY IN 1 WEEK
     Route: 048
  12. NYSTATIN. [Concomitant]
     Active Substance: NYSTATIN
     Dosage: ONE SWISH 4 TIMES A DAY
  13. ADVIL [Concomitant]
     Active Substance: IBUPROFEN
  14. ZOLOFT [Suspect]
     Active Substance: SERTRALINE HYDROCHLORIDE
     Indication: AFFECTIVE DISORDER
     Dosage: FREQUENCY AND DAILY DOSE: 50 MG DAILY IN 1 WEEK
     Route: 048
     Dates: start: 201110
  15. AMPYRA [Suspect]
     Active Substance: DALFAMPRIDINE
     Indication: GAIT DISTURBANCE
     Route: 048
     Dates: start: 201202
  16. TROSPIUM CHLORIDE. [Concomitant]
     Active Substance: TROSPIUM CHLORIDE
     Indication: NEUROGENIC BLADDER
  17. ARICEPT [Suspect]
     Active Substance: DONEPEZIL HYDROCHLORIDE
     Indication: MEMORY IMPAIRMENT
     Route: 048
  18. ZOLOFT [Suspect]
     Active Substance: SERTRALINE HYDROCHLORIDE
     Indication: DEPRESSION
     Dosage: FREQUENCY AND DAILY DOSE: 50 MG DAILY IN 1 WEEK
     Route: 048
     Dates: start: 201110
  19. EFFEXOR [Concomitant]
     Active Substance: VENLAFAXINE HYDROCHLORIDE

REACTIONS (36)
  - Sepsis [Unknown]
  - Agitation [Recovering/Resolving]
  - Night sweats [Unknown]
  - Dyspepsia [Recovered/Resolved]
  - Fatigue [Not Recovered/Not Resolved]
  - Fracture [Unknown]
  - Apathy [Recovering/Resolving]
  - Muscular weakness [Not Recovered/Not Resolved]
  - Hot flush [Unknown]
  - Balance disorder [Not Recovered/Not Resolved]
  - Flatulence [Unknown]
  - Snoring [Unknown]
  - Dysuria [Unknown]
  - Musculoskeletal pain [Not Recovered/Not Resolved]
  - Jaundice [Unknown]
  - Memory impairment [Unknown]
  - Vision blurred [Unknown]
  - Urine odour abnormal [Unknown]
  - Muscle spasms [Recovered/Resolved]
  - Personality change [Recovering/Resolving]
  - Chills [Unknown]
  - Dysstasia [Not Recovered/Not Resolved]
  - Restless legs syndrome [Recovered/Resolved]
  - Vulval cancer [Unknown]
  - Rotator cuff repair [Unknown]
  - Gait disturbance [Not Recovered/Not Resolved]
  - Urinary tract infection [Unknown]
  - Alopecia [Recovering/Resolving]
  - Low density lipoprotein increased [Unknown]
  - Anger [Recovering/Resolving]
  - Depression [Recovering/Resolving]
  - Stress [Unknown]
  - Diarrhoea [Recovered/Resolved]
  - Weight increased [Not Recovered/Not Resolved]
  - Vitamin B12 increased [Unknown]
  - Diplopia [Unknown]

NARRATIVE: CASE EVENT DATE: 2014
